FAERS Safety Report 5473634-3 (Version None)
Quarter: 2007Q4

REPORT INFORMATION
  Report Type: 
  Country: None (occurrence: None)
  Receive Date: 20071001
  Receipt Date: 20070920
  Transmission Date: 20080405
  Serious: Yes (Hospitalization)
  Sender: FDA-Public Use
  Company Number: GB-BAXTER-2007BH007819

PATIENT
  Age: 27 Year
  Sex: Male

DRUGS (5)
  1. FORANE [Suspect]
     Indication: CIRCUMCISION
     Dosage: DOSE UNIT:UNKNOWN
     Route: 065
  2. FENTANYL [Suspect]
     Indication: CIRCUMCISION
     Route: 042
  3. MIDAZOLAM HCL [Suspect]
     Indication: CIRCUMCISION
     Route: 042
  4. PROPOFOL [Suspect]
     Indication: CIRCUMCISION
     Route: 042
  5. LIDOCAINE [Concomitant]
     Indication: NERVE BLOCK

REACTIONS (3)
  - APNOEA [None]
  - LOSS OF CONSCIOUSNESS [None]
  - MIGRAINE WITH AURA [None]
